FAERS Safety Report 5372704-8 (Version None)
Quarter: 2007Q2

REPORT INFORMATION
  Report Type: 
  Country: None (occurrence: None)
  Receive Date: 20070619
  Receipt Date: 20060621
  Transmission Date: 20071010
  Serious: Yes (Life-Threatening, Disabling)
  Sender: FDA-Public Use
  Company Number: WAES 0606USA04167

PATIENT
  Sex: Female

DRUGS (1)
  1. COZAAR [Suspect]
     Indication: HYPERTENSION
     Dosage: 50 MG/DAILY/PO
     Route: 048

REACTIONS (1)
  - RENAL FAILURE [None]
